FAERS Safety Report 11100386 (Version 2)
Quarter: 2015Q2

REPORT INFORMATION
  Report Type: Spontaneous
  Country: US (occurrence: US)
  Receive Date: 20150508
  Receipt Date: 20150601
  Transmission Date: 20150821
  Serious: No
  Sender: FDA-Public Use
  Company Number: US-BAYER-2015-190081

PATIENT
  Age: 61 Year
  Sex: Female
  Weight: 58.96 kg

DRUGS (5)
  1. CLIMARA [Suspect]
     Active Substance: ESTRADIOL
     Indication: HORMONE REPLACEMENT THERAPY
     Dosage: 0.05 MG/24HR, CONT
     Route: 062
     Dates: start: 201501
  2. GLUCOSAMINE SULFATE W/CHONDROITIN [Concomitant]
     Indication: ARTHRALGIA
     Dosage: FOR MANY YEARS
  3. MULTIVITAMINS [Concomitant]
     Active Substance: VITAMINS
     Indication: NUTRITIONAL SUPPLEMENTATION
     Dosage: FOR MANY YEARS
     Route: 048
  4. VITAMIN B12 [Concomitant]
     Active Substance: CYANOCOBALAMIN
     Indication: MIGRAINE
  5. PROBIOTICA [Concomitant]
     Active Substance: PROBIOTICS NOS
     Indication: OSTEOPOROSIS

REACTIONS (2)
  - Migraine [Recovered/Resolved]
  - Product adhesion issue [None]

NARRATIVE: CASE EVENT DATE: 20150414
